FAERS Safety Report 8884284 (Version 1)
Quarter: 2012Q4

REPORT INFORMATION
  Report Type: 
  Country: US (occurrence: US)
  Receive Date: 20121102
  Receipt Date: 20121102
  Transmission Date: 20130627
  Serious: No
  Sender: FDA-Public Use
  Company Number: US-ASTRAZENECA-2012SE19897

PATIENT
  Age: 48 Year
  Sex: Female

DRUGS (5)
  1. CRESTOR [Suspect]
     Indication: BLOOD CHOLESTEROL INCREASED
     Route: 048
  2. SINGULAIR [Concomitant]
  3. MYCARDIS [Concomitant]
  4. RAMIPRIL [Concomitant]
  5. LANSOTRANZOLE [Concomitant]

REACTIONS (2)
  - Increased appetite [Unknown]
  - Myalgia [Unknown]
